FAERS Safety Report 15027999 (Version 2)
Quarter: 2018Q3

REPORT INFORMATION
  Report Type: Spontaneous
  Country: BE (occurrence: BE)
  Receive Date: 20180619
  Receipt Date: 20180703
  Transmission Date: 20181010
  Serious: Yes (Other)
  Sender: FDA-Public Use
  Company Number: BE-WEST-WARD PHARMACEUTICALS CORP.-BE-H14001-18-04972

PATIENT
  Sex: Female
  Weight: 88 kg

DRUGS (10)
  1. CARBOPLATIN. [Suspect]
     Active Substance: CARBOPLATIN
     Indication: OVARIAN CANCER
     Dosage: 480 AUC (1)
     Route: 042
     Dates: start: 20150402, end: 20150526
  2. PACLITAXEL. [Suspect]
     Active Substance: PACLITAXEL
     Indication: OVARIAN CANCER
     Dosage: LAST DOSE ON 08/DEC/2016
     Route: 042
     Dates: start: 20150402, end: 20150526
  3. METATOP (BELGIUM) [Concomitant]
     Indication: INSOMNIA
     Route: 065
     Dates: start: 201505, end: 201505
  4. NEUPOGEN [Concomitant]
     Active Substance: FILGRASTIM
     Indication: NEUTROPENIA
     Route: 065
     Dates: start: 20150504, end: 20160117
  5. CIPROXINE [Concomitant]
     Active Substance: CIPROFLOXACIN
     Indication: URINARY TRACT INFECTION
     Route: 065
     Dates: start: 20161021, end: 20161021
  6. ARANESP [Concomitant]
     Active Substance: DARBEPOETIN ALFA
     Indication: ANAEMIA
     Route: 065
     Dates: start: 20150421, end: 20160122
  7. MONURIL [Concomitant]
     Active Substance: FOSFOMYCIN SODIUM
     Indication: URINARY TRACT INFECTION
     Route: 065
     Dates: start: 20161013, end: 20161013
  8. BEVACIZUMAB. [Suspect]
     Active Substance: BEVACIZUMAB
     Indication: OVARIAN CANCER
     Route: 042
     Dates: start: 20150424, end: 20150526
  9. BEFACT FORTE [Concomitant]
     Indication: PARAESTHESIA
     Route: 065
     Dates: start: 201603, end: 201612
  10. BLOOD TRANSFUSION [Concomitant]
     Active Substance: HUMAN RED BLOOD CELL
     Indication: ANAEMIA
     Route: 065
     Dates: start: 20150508, end: 20150508

REACTIONS (17)
  - Hyponatraemia [Not Recovered/Not Resolved]
  - Arthralgia [Recovered/Resolved]
  - Asthenia [Not Recovered/Not Resolved]
  - Depression [Not Recovered/Not Resolved]
  - Neutropenia [Recovered/Resolved]
  - Confusional state [Recovered/Resolved]
  - Anaemia [Recovered/Resolved]
  - Myalgia [Recovered/Resolved]
  - Femoral neck fracture [Not Recovered/Not Resolved]
  - Platelet count decreased [Recovered/Resolved]
  - Troponin T increased [Not Recovered/Not Resolved]
  - Paraesthesia [Recovered/Resolved]
  - Hypoventilation [Recovered/Resolved]
  - Insomnia [Recovered/Resolved]
  - N-terminal prohormone brain natriuretic peptide increased [Not Recovered/Not Resolved]
  - Leukopenia [Recovered/Resolved]
  - Urinary tract infection [Recovered/Resolved]

NARRATIVE: CASE EVENT DATE: 20150424
